FAERS Safety Report 13824381 (Version 2)
Quarter: 2017Q3

REPORT INFORMATION
  Report Type: Spontaneous
  Country: US (occurrence: US)
  Receive Date: 20170802
  Receipt Date: 20170814
  Transmission Date: 20171127
  Serious: Yes (Other)
  Sender: FDA-Public Use
  Company Number: US-009507513-1708USA000390

PATIENT
  Age: 68 Year
  Sex: Female

DRUGS (9)
  1. METHOTREXATE. [Suspect]
     Active Substance: METHOTREXATE
     Dosage: 3G/M2=6300MG ON DAYS 1 AND 8
     Route: 037
  2. DEXAMETHASONE. [Suspect]
     Active Substance: DEXAMETHASONE
     Indication: ACUTE LYMPHOCYTIC LEUKAEMIA
     Dosage: UNK
     Dates: start: 20161119
  3. VINCRISTINE [Suspect]
     Active Substance: VINCRISTINE
     Indication: ACUTE LYMPHOCYTIC LEUKAEMIA
     Dosage: 2 MG EVERY 7 DAYS FOR 4 DOSES
     Route: 042
     Dates: start: 20160921, end: 201610
  4. METHOTREXATE. [Suspect]
     Active Substance: METHOTREXATE
     Indication: ACUTE LYMPHOCYTIC LEUKAEMIA
     Dosage: 12.5 MG, ONCE
     Route: 037
     Dates: start: 20161004
  5. DEXAMETHASONE. [Suspect]
     Active Substance: DEXAMETHASONE
     Dosage: 10 MG, UNK
     Dates: start: 20170725
  6. CYTARABINE. [Suspect]
     Active Substance: CYTARABINE
     Indication: ACUTE LYMPHOCYTIC LEUKAEMIA
     Dosage: 70 MG, UNK
     Route: 037
  7. MARQIBO [Suspect]
     Active Substance: VINCRISTINE SULFATE
     Indication: ACUTE LYMPHOCYTIC LEUKAEMIA
     Dosage: 4.9 MG, QWFOR 4 WEEKS
     Route: 042
     Dates: start: 2017
  8. CYTARABINE. [Suspect]
     Active Substance: CYTARABINE
     Dosage: 163 MG, Q 24 HOURS FOR FOUR DOSES
     Route: 042
  9. METHOTREXATE. [Suspect]
     Active Substance: METHOTREXATE
     Dosage: 12.5 MG WEEKLY TIMES 4 DOSES
     Route: 037

REACTIONS (4)
  - Rash [Unknown]
  - Angina pectoris [Unknown]
  - Acute lymphocytic leukaemia [Unknown]
  - Chest pain [Unknown]

NARRATIVE: CASE EVENT DATE: 2017
